FAERS Safety Report 10997664 (Version 1)
Quarter: 2015Q2

REPORT INFORMATION
  Report Type: Spontaneous
  Country: US (occurrence: US)
  Receive Date: 20150408
  Receipt Date: 20150408
  Transmission Date: 20150821
  Serious: No
  Sender: FDA-Public Use
  Company Number: US-BANPHARM-20143003

PATIENT
  Age: 79 Year
  Sex: Female
  Weight: 65.77 kg

DRUGS (4)
  1. ALEVE [Suspect]
     Active Substance: NAPROXEN SODIUM
     Indication: ARTHRITIS
     Dosage: 1 DF, PRN,
     Dates: start: 2014, end: 20140808
  2. HIGH CHOLESTEROL PILL [Concomitant]
  3. ALEVE [Suspect]
     Active Substance: NAPROXEN SODIUM
     Indication: ARTHRITIS
     Dosage: ONCE,
     Route: 048
     Dates: start: 201408, end: 201408
  4. LOW DOSE ASPIRIN REGIMEN BAYER [Concomitant]

REACTIONS (5)
  - Dysphagia [Recovered/Resolved]
  - Wrong technique in drug usage process [Unknown]
  - Chest pain [Recovered/Resolved]
  - Throat irritation [Unknown]
  - Vomiting [Recovered/Resolved]

NARRATIVE: CASE EVENT DATE: 2014
